FAERS Safety Report 8262693-0 (Version None)
Quarter: 2012Q1

REPORT INFORMATION
  Report Type: 
  Country: None (occurrence: None)
  Receive Date: 20120327
  Receipt Date: 20110331
  Transmission Date: 20120608
  Serious: Yes (Other)
  Sender: FDA-Public Use
  Company Number: PHHY2011US27208

PATIENT
  Sex: Male

DRUGS (1)
  1. GLEEVEC [Suspect]
     Indication: SOFT TISSUE NEOPLASM
     Dosage: 400
     Dates: start: 20090130

REACTIONS (4)
  - BACK PAIN [None]
  - ABDOMINAL PAIN [None]
  - FATIGUE [None]
  - ANAEMIA [None]
